FAERS Safety Report 10347013 (Version 3)
Quarter: 2014Q3

REPORT INFORMATION
  Report Type: Spontaneous
  Country: DE (occurrence: DE)
  Receive Date: 20140729
  Receipt Date: 20140819
  Transmission Date: 20150326
  Serious: Yes (Life-Threatening, Hospitalization, Other)
  Sender: FDA-Public Use
  Company Number: PHHY2014DE089949

PATIENT
  Age: 77 Year
  Sex: Female
  Weight: 66 kg

DRUGS (3)
  1. CO-DIOVAN [Suspect]
     Active Substance: HYDROCHLOROTHIAZIDE\VALSARTAN
     Indication: HYPERTENSION
     Dosage: 1 DF (80MG VALS,12.5MG HCTZ), QD
     Route: 048
  2. TEBONIN [Concomitant]
     Indication: NERVOUS SYSTEM DISORDER
     Dosage: 0.5 DF, BID (240 MG)
     Route: 048
  3. DIOVAN [Suspect]
     Active Substance: VALSARTAN
     Indication: HYPERTENSION
     Dosage: 2 DF, QD (0.5 DF AND 1.5 DF)
     Route: 048
     Dates: start: 201405, end: 20140722

REACTIONS (17)
  - Blood pressure increased [Recovering/Resolving]
  - Cardiac failure [Unknown]
  - Nausea [Recovered/Resolved]
  - Dizziness [Unknown]
  - Back pain [Unknown]
  - Blood pressure fluctuation [Recovering/Resolving]
  - Bone pain [Unknown]
  - Arthralgia [Not Recovered/Not Resolved]
  - Pollakiuria [Unknown]
  - Angina pectoris [Recovering/Resolving]
  - Myalgia [Unknown]
  - Poor quality sleep [Unknown]
  - Wrong technique in drug usage process [Unknown]
  - Disturbance in attention [Unknown]
  - Asthenia [Not Recovered/Not Resolved]
  - Fear of death [Unknown]
  - Fatigue [Not Recovered/Not Resolved]

NARRATIVE: CASE EVENT DATE: 20140305
